FAERS Safety Report 25955855 (Version 1)
Quarter: 2025Q4

REPORT INFORMATION
  Report Type: Report from Study
  Country: CA (occurrence: CA)
  Receive Date: 20251024
  Receipt Date: 20251024
  Transmission Date: 20260117
  Serious: Yes (Death)
  Sender: ABBVIE
  Company Number: CA-ABBVIE-6517398

PATIENT
  Age: 90 Year
  Sex: Male

DRUGS (1)
  1. LUPRON [Suspect]
     Active Substance: LEUPROLIDE ACETATE
     Indication: Prostate cancer
     Dosage: FORM STRENGTH: 30 MILLIGRAM, DOSE FORM: POWDER AND SOLVENT FOR SUSPENSION FOR INJECTION IN PRE-FI...
     Route: 030
     Dates: start: 20200521, end: 20250818

REACTIONS (1)
  - Death [Fatal]

NARRATIVE: CASE EVENT DATE: 20251011
